FAERS Safety Report 21544280 (Version 1)
Quarter: 2022Q4

REPORT INFORMATION
  Report Type: Spontaneous
  Country: CN (occurrence: None)
  Receive Date: 20221102
  Receipt Date: 20221102
  Transmission Date: 20230113
  Serious: Yes (Other)
  Sender: FDA-Public Use
  Company Number: CN-ROCHE-3210268

PATIENT
  Age: 46 Year
  Sex: Female

DRUGS (12)
  1. HERCEPTIN [Suspect]
     Active Substance: TRASTUZUMAB
     Indication: Invasive ductal breast carcinoma
     Route: 065
     Dates: start: 20200313, end: 20200716
  2. HERCEPTIN [Suspect]
     Active Substance: TRASTUZUMAB
     Route: 065
  3. HERCEPTIN [Suspect]
     Active Substance: TRASTUZUMAB
     Route: 065
     Dates: start: 202107
  4. PERJETA [Suspect]
     Active Substance: PERTUZUMAB
     Indication: Invasive ductal breast carcinoma
     Route: 065
     Dates: start: 20200313, end: 20200716
  5. PERJETA [Suspect]
     Active Substance: PERTUZUMAB
     Route: 065
  6. PERJETA [Suspect]
     Active Substance: PERTUZUMAB
     Route: 065
     Dates: start: 202107
  7. PACLITAXEL [Concomitant]
     Active Substance: PACLITAXEL
     Indication: Invasive ductal breast carcinoma
     Dosage: 125MG/M2 SINGLE WEEK
     Dates: start: 20200313, end: 20200716
  8. ZOLEDRONIC ACID [Concomitant]
     Active Substance: ZOLEDRONIC ACID
     Dates: start: 20200313, end: 20200716
  9. ZOLEDRONIC ACID [Concomitant]
     Active Substance: ZOLEDRONIC ACID
  10. LETROZOLE [Concomitant]
     Active Substance: LETROZOLE
  11. EXEMESTANE [Concomitant]
     Active Substance: EXEMESTANE
     Dates: start: 202107
  12. DENOSUMAB [Concomitant]
     Active Substance: DENOSUMAB
     Dates: start: 202107

REACTIONS (1)
  - Osteonecrosis of jaw [Unknown]

NARRATIVE: CASE EVENT DATE: 20210626
